FAERS Safety Report 4389927-7 (Version None)
Quarter: 2004Q2

REPORT INFORMATION
  Report Type: 
  Country: None (occurrence: None)
  Receive Date: 20040630
  Receipt Date: 20040630
  Transmission Date: 20050107
  Serious: Yes (Life-Threatening)
  Sender: FDA-Public Use
  Company Number: None

PATIENT
  Age: 70 Year
  Sex: Female
  Weight: 92 kg

DRUGS (2)
  1. EPIRUBICIN [Suspect]
     Indication: BREAST CANCER
     Dosage: 242 MG IV Q 3 WKS
     Route: 042
     Dates: start: 20040616
  2. NEULASTA [Concomitant]

REACTIONS (2)
  - FLANK PAIN [None]
  - NEUTROPHIL COUNT DECREASED [None]
